FAERS Safety Report 7753446-8 (Version None)
Quarter: 2011Q3

REPORT INFORMATION
  Report Type: 
  Country: None (occurrence: None)
  Receive Date: 20110915
  Receipt Date: 20110902
  Transmission Date: 20111222
  Serious: Yes (Hospitalization, Other)
  Sender: FDA-Public Use
  Company Number: US-ELI_LILLY_AND_COMPANY-US201107006447

PATIENT
  Sex: Female
  Weight: 70.7 kg

DRUGS (9)
  1. ZINC [Concomitant]
  2. SYNTHROID [Concomitant]
     Indication: HYPOTHYROIDISM
     Dosage: UNK
  3. VITAMIN TAB [Concomitant]
  4. THYROID TAB [Concomitant]
  5. FORTEO [Suspect]
     Indication: OSTEOPOROSIS
     Dosage: 20 UG, QD
     Route: 058
     Dates: start: 20100601, end: 20110708
  6. NIFEREX [Concomitant]
  7. CALCIUM CARBONATE [Concomitant]
  8. MAGNESIUM [Concomitant]
  9. VITAMIN D [Concomitant]

REACTIONS (2)
  - ARTHRALGIA [None]
  - OSTEOARTHRITIS [None]
